FAERS Safety Report 6576942-8 (Version None)
Quarter: 2010Q1

REPORT INFORMATION
  Report Type: 
  Country: None (occurrence: None)
  Receive Date: 20100210
  Receipt Date: 20100201
  Transmission Date: 20100710
  Serious: Yes (Other)
  Sender: FDA-Public Use
  Company Number: SE-AMGEN-US390701

PATIENT
  Sex: Male

DRUGS (9)
  1. ENBREL [Suspect]
     Indication: RHEUMATOID ARTHRITIS
     Route: 058
     Dates: start: 20070101, end: 20091101
  2. PANDEMRIX [Suspect]
     Indication: IMMUNISATION
     Dosage: DOSE UNKNOWN
     Dates: start: 20091101, end: 20091101
  3. OMEPRAZOLE [Concomitant]
  4. METFORMIN HCL [Concomitant]
  5. SOTALOL [Concomitant]
  6. MINIDIAB [Concomitant]
  7. ACETAMINOPHEN W/ CODEINE [Concomitant]
  8. PRONAXEN [Concomitant]
  9. SIMVASTATIN [Concomitant]

REACTIONS (1)
  - FACIAL PALSY [None]
